FAERS Safety Report 12674691 (Version 4)
Quarter: 2016Q4

REPORT INFORMATION
  Report Type: Report from Study
  Country: US (occurrence: US)
  Receive Date: 20160823
  Receipt Date: 20161130
  Transmission Date: 20170207
  Serious: Yes (Hospitalization)
  Sender: FDA-Public Use
  Company Number: US-ASTRAZENECA-2016SE90015

PATIENT
  Age: 66 Year
  Sex: Female
  Weight: 57.8 kg

DRUGS (8)
  1. AZD1775 [Suspect]
     Active Substance: INVESTIGATIONAL PRODUCT
     Indication: UTERINE CANCER
     Dosage: 175 MG, CYCLICAL
     Route: 048
     Dates: start: 20160726, end: 20160804
  2. PROCHLORPERAZINE. [Concomitant]
     Active Substance: PROCHLORPERAZINE
     Dosage: 10 MG
     Route: 048
     Dates: start: 20160801
  3. VITAMIN B12 [Concomitant]
     Active Substance: CYANOCOBALAMIN
     Route: 065
     Dates: start: 20150801
  4. CALCIUM D [Concomitant]
     Active Substance: CALCIUM\VITAMIN D
     Route: 048
     Dates: start: 20160801
  5. XGEVA [Concomitant]
     Active Substance: DENOSUMAB
     Route: 065
     Dates: start: 20150213
  6. DEXAMETHASONE. [Concomitant]
     Active Substance: DEXAMETHASONE
     Dosage: 10 MG
     Route: 048
     Dates: start: 20160801
  7. OLAPARIB [Suspect]
     Active Substance: OLAPARIB
     Indication: UTERINE CANCER
     Dosage: 300 MG, CYCLICAL
     Route: 048
     Dates: start: 20160719, end: 20160808
  8. VITAMIN D3 [Concomitant]
     Active Substance: CHOLECALCIFEROL
     Route: 065
     Dates: start: 20160801

REACTIONS (3)
  - Thrombocytopenia [Recovered/Resolved]
  - Febrile neutropenia [Recovered/Resolved]
  - Anaemia [Recovered/Resolved]

NARRATIVE: CASE EVENT DATE: 20160812
